FAERS Safety Report 9435127 (Version 1)
Quarter: 2013Q3

REPORT INFORMATION
  Report Type: Spontaneous
  Country: CA (occurrence: CA)
  Receive Date: 20130801
  Receipt Date: 20130801
  Transmission Date: 20140515
  Serious: Yes (Other)
  Sender: FDA-Public Use
  Company Number: CHPA2013CA011927

PATIENT
  Age: 75 Year
  Sex: Female

DRUGS (4)
  1. PRODIEM OVERNIGHT RELIEF THERAPY [Suspect]
     Indication: CONSTIPATION
     Dosage: 1-2 PILLS; QHS
     Route: 048
     Dates: end: 20130724
  2. PRODIEM OVERNIGHT RELIEF THERAPY [Suspect]
     Indication: DIVERTICULITIS
  3. PRODIEM BULK FIBRE THERAPY POWDER [Suspect]
     Indication: CONSTIPATION
     Dosage: 1.5 TSP; UNK
     Route: 048
  4. PRODIEM BULK FIBRE THERAPY POWDER [Suspect]
     Indication: DIVERTICULITIS

REACTIONS (4)
  - Drug abuse [Unknown]
  - Diverticulitis [Unknown]
  - Incorrect dose administered [Unknown]
  - Incorrect drug administration duration [Unknown]
